FAERS Safety Report 16179853 (Version 1)
Quarter: 2019Q2

REPORT INFORMATION
  Report Type: Spontaneous
  Country: US (occurrence: US)
  Receive Date: 20190410
  Receipt Date: 20190410
  Transmission Date: 20190711
  Serious: Yes (Other)
  Sender: FDA-Public Use
  Company Number: US-PFIZER INC-2019148960

PATIENT
  Age: 84 Year
  Sex: Male
  Weight: 81.65 kg

DRUGS (1)
  1. TRIAZOLAM. [Suspect]
     Active Substance: TRIAZOLAM
     Dosage: UNK

REACTIONS (4)
  - Gait inability [Unknown]
  - Skin ulcer [Unknown]
  - Condition aggravated [Unknown]
  - Pain [Unknown]
